FAERS Safety Report 20756697 (Version 4)
Quarter: 2022Q4

REPORT INFORMATION
  Report Type: Spontaneous
  Country: FR (occurrence: FR)
  Receive Date: 20220427
  Receipt Date: 20221025
  Transmission Date: 20230113
  Serious: Yes (Hospitalization, Other)
  Sender: FDA-Public Use
  Company Number: FR-SA-2017SA032108

PATIENT
  Age: 17 Year
  Sex: Female

DRUGS (31)
  1. LENALIDOMIDE [Suspect]
     Active Substance: LENALIDOMIDE
     Indication: Product used for unknown indication
     Dosage: 5 MILLIGRAM, QD, 5 MG, QD
     Route: 065
  2. PLAQUENIL [Suspect]
     Active Substance: HYDROXYCHLOROQUINE SULFATE
     Indication: Chronic cutaneous lupus erythematosus
     Dosage: 45 DOSAGE FORM, TOTAL, 45 DF,1X, TOTAL
     Route: 048
     Dates: start: 20161127, end: 20161127
  3. PLAQUENIL [Suspect]
     Active Substance: HYDROXYCHLOROQUINE SULFATE
     Indication: Cutaneous lupus erythematosus
     Dosage: 2 DOSAGE FORM, QD, 2 DF,QD
     Route: 048
     Dates: start: 201512
  4. PLAQUENIL [Suspect]
     Active Substance: HYDROXYCHLOROQUINE SULFATE
     Indication: Raynaud^s phenomenon
     Dosage: 200 MILLIGRAM, BID, 12 HOURS
     Route: 065
     Dates: start: 201512, end: 201606
  5. PLAQUENIL [Suspect]
     Active Substance: HYDROXYCHLOROQUINE SULFATE
     Indication: Hypertension
  6. THALIDOMIDE [Concomitant]
     Active Substance: THALIDOMIDE
     Indication: Chronic cutaneous lupus erythematosus
     Dosage: 1 DOSAGE FORM
     Route: 048
     Dates: start: 20160613
  7. THALIDOMIDE [Concomitant]
     Active Substance: THALIDOMIDE
     Dosage: 28 DOSAGE FORM
     Route: 048
     Dates: start: 20161127, end: 20161127
  8. THALIDOMIDE [Concomitant]
     Active Substance: THALIDOMIDE
     Dosage: 50 MILLIGRAM, QD
     Route: 065
  9. THALIDOMIDE [Concomitant]
     Active Substance: THALIDOMIDE
     Dosage: 100 MILLIGRAM, QD
     Route: 065
  10. THALIDOMIDE [Concomitant]
     Active Substance: THALIDOMIDE
     Dosage: 100 MILLIGRAM, QD
     Route: 065
  11. THALIDOMIDE [Concomitant]
     Active Substance: THALIDOMIDE
     Dosage: 50 MILLIGRAM, Q2D
     Route: 065
  12. THALIDOMIDE [Concomitant]
     Active Substance: THALIDOMIDE
     Dosage: 50 MILLIGRAM, QD
     Route: 065
  13. NIFEDIPINE [Concomitant]
     Active Substance: NIFEDIPINE
     Dosage: LP 30 1 PER DAY, QD
     Route: 065
  14. ALPRAZOLAM [Concomitant]
     Active Substance: ALPRAZOLAM
     Indication: Product used for unknown indication
     Dosage: FREQ:{TOTAL};30 DF,1X
     Route: 065
     Dates: start: 20161127, end: 20161127
  15. ALPRAZOLAM [Concomitant]
     Active Substance: ALPRAZOLAM
     Dosage: 0.5 DF, 1X/DAY
     Route: 065
     Dates: start: 201611
  16. ALPRAZOLAM [Concomitant]
     Active Substance: ALPRAZOLAM
     Dosage: UNK
     Route: 065
  17. ALPRAZOLAM [Concomitant]
     Active Substance: ALPRAZOLAM
     Dosage: UNK
     Route: 065
  18. ACETAMINOPHEN [Concomitant]
     Active Substance: ACETAMINOPHEN
     Dosage: 1 GRAM, PRN, (1G/6H IF REQUIRED)
     Route: 065
  19. TROPATEPINE HYDROCHLORIDE [Concomitant]
     Active Substance: TROPATEPINE HYDROCHLORIDE
     Dosage: 1 TABLET AT 8:00, 1 TABLET AT 19:00
     Route: 065
  20. IMOVANE [Concomitant]
     Active Substance: ZOPICLONE
     Dosage: UNK, 1 COMP / TABLET
     Route: 065
  21. REVLIMID [Concomitant]
     Active Substance: LENALIDOMIDE
     Dosage: 5 MILLIGRAM, QD
     Route: 065
  22. ASPIRIN [Concomitant]
     Active Substance: ASPIRIN
     Dosage: 100 MILLIGRAM, QD, 100 MG/DAY
     Route: 065
     Dates: start: 20160613
  23. ASPIRIN [Concomitant]
     Active Substance: ASPIRIN
     Dosage: 100 MG/DAY
     Route: 065
  24. MINERAL OIL [Concomitant]
     Active Substance: MINERAL OIL
     Dosage: SINGLE DOSE 1 DOSE AT 8:00, 12:00, 19:00
     Route: 065
  25. XANAX [Concomitant]
     Active Substance: ALPRAZOLAM
     Dosage: 1 DF, Q8H, 1 TABLET AT 8:00, 12:00, 19:00
     Route: 065
  26. XANAX [Concomitant]
     Active Substance: ALPRAZOLAM
     Dosage: UNK
     Route: 065
  27. XANAX [Concomitant]
     Active Substance: ALPRAZOLAM
     Dosage: UNK
     Route: 065
  28. RISPERDAL [Concomitant]
     Active Substance: RISPERIDONE
     Dosage: 1 TABLET AT 8:00, 1 TABLET AT 19:00
     Route: 065
  29. RISPERDAL [Concomitant]
     Active Substance: RISPERIDONE
     Dosage: UNK
     Route: 065
  30. DUPHALAC [Concomitant]
     Active Substance: LACTULOSE
     Dosage: 1 SACHET AT 8 :00, 12 :00 , 19 :00
     Route: 065
  31. CANNABIS SATIVA SUBSP. INDICA TOP [Concomitant]
     Active Substance: CANNABIS SATIVA SUBSP. INDICA TOP
     Dosage: UNK
     Route: 065

REACTIONS (43)
  - Psychotic disorder [Unknown]
  - Loss of consciousness [Unknown]
  - Toxicity to various agents [Unknown]
  - Delirium [Unknown]
  - Sleep apnoea syndrome [Unknown]
  - Arthralgia [Unknown]
  - Depression [Recovering/Resolving]
  - Emotional distress [Unknown]
  - Weight decreased [Unknown]
  - Major depression [Unknown]
  - Suicide attempt [Unknown]
  - Nightmare [Unknown]
  - Cardiac arrest [Unknown]
  - Hallucination [Unknown]
  - Suicidal ideation [Unknown]
  - Chronic cutaneous lupus erythematosus [Unknown]
  - Drug abuse [Unknown]
  - Systemic lupus erythematosus [Unknown]
  - Hallucination, auditory [Unknown]
  - Drug intolerance [Unknown]
  - Mental disorder [Unknown]
  - Psychomotor retardation [Unknown]
  - Persecutory delusion [Unknown]
  - Foot fracture [Unknown]
  - Amnesia [Unknown]
  - Peripheral coldness [Recovering/Resolving]
  - Sleep disorder [Unknown]
  - Condition aggravated [Unknown]
  - Raynaud^s phenomenon [Unknown]
  - Cyanosis [Unknown]
  - Frostbite [Recovering/Resolving]
  - Malaise [Unknown]
  - Fatigue [Unknown]
  - Headache [Unknown]
  - Back pain [Unknown]
  - Asthenia [Unknown]
  - Diarrhoea [Unknown]
  - Rash erythematous [Unknown]
  - Rash [Unknown]
  - Overdose [Unknown]
  - Depressed mood [Unknown]
  - Substance use [Unknown]
  - Chillblains [Unknown]

NARRATIVE: CASE EVENT DATE: 20160301
